FAERS Safety Report 24105844 (Version 1)
Quarter: 2024Q3

REPORT INFORMATION
  Report Type: Spontaneous
  Country: US (occurrence: None)
  Receive Date: 20240716
  Receipt Date: 20240716
  Transmission Date: 20241017
  Serious: Yes (Other)
  Sender: Public
  Company Number: None

PATIENT
  Sex: 0

DRUGS (1)
  1. VRAYLAR [Suspect]
     Active Substance: CARIPRAZINE

REACTIONS (1)
  - Loss of consciousness [None]
